FAERS Safety Report 15531168 (Version 1)
Quarter: 2018Q4

REPORT INFORMATION
  Report Type: Spontaneous
  Country: US (occurrence: US)
  Receive Date: 20181019
  Receipt Date: 20181019
  Transmission Date: 20190205
  Serious: No
  Sender: FDA-Public Use
  Company Number: US-009507513-1810USA007655

PATIENT
  Sex: Female

DRUGS (2)
  1. GANIRELIX ACETATE. [Suspect]
     Active Substance: GANIRELIX ACETATE
     Dosage: 250 MICROGRAM, QD
     Route: 058
     Dates: start: 20180609
  2. PROGESTERONE. [Suspect]
     Active Substance: PROGESTERONE

REACTIONS (1)
  - Fatigue [Unknown]
